FAERS Safety Report 25665195 (Version 1)
Quarter: 2025Q3

REPORT INFORMATION
  Report Type: Spontaneous
  Country: CN (occurrence: CN)
  Receive Date: 20250811
  Receipt Date: 20250811
  Transmission Date: 20251021
  Serious: Yes (Death)
  Sender: INCYTE
  Company Number: CN-002147023-NVSC2025CN125065

PATIENT

DRUGS (1)
  1. RUXOLITINIB [Suspect]
     Active Substance: RUXOLITINIB
     Indication: Myelofibrosis
     Dosage: 20 MG, BID (DURING THE TREATMENT PERIOD, THE DOSAGE OF RUXOLITINIB IS ADJUSTED BASED ON THE PATIENT^
     Route: 065

REACTIONS (1)
  - Transformation to acute myeloid leukaemia [Fatal]
